FAERS Safety Report 8064358-7 (Version None)
Quarter: 2012Q1

REPORT INFORMATION
  Report Type: 
  Country: None (occurrence: None)
  Receive Date: 20120123
  Receipt Date: 20120117
  Transmission Date: 20120608
  Serious: Yes (Hospitalization, Other)
  Sender: FDA-Public Use
  Company Number: US-ASTRAZENECA-2009SE33510

PATIENT
  Age: 66 Year
  Sex: Male

DRUGS (2)
  1. SEROQUEL [Suspect]
     Route: 048
  2. INHALERS [Concomitant]

REACTIONS (9)
  - ADVERSE EVENT [None]
  - MYOCARDIAL INFARCTION [None]
  - BIPOLAR DISORDER [None]
  - HYPERTENSION [None]
  - EMPHYSEMA [None]
  - HYPERSOMNIA [None]
  - WRONG DRUG ADMINISTERED [None]
  - BIPOLAR I DISORDER [None]
  - DYSPNOEA [None]
